FAERS Safety Report 5955468-6 (Version None)
Quarter: 2008Q4

REPORT INFORMATION
  Report Type: 
  Country: None (occurrence: None)
  Receive Date: 20081113
  Receipt Date: 20081029
  Transmission Date: 20090506
  Serious: Yes (Disabling)
  Sender: FDA-Public Use
  Company Number: 8032850

PATIENT
  Age: 44 Year
  Sex: Female

DRUGS (3)
  1. KEPPRA [Suspect]
     Indication: CONVULSION
     Dosage: 500 MG /D PO
     Route: 048
     Dates: start: 20070101
  2. KEPPRA [Suspect]
     Indication: CONVULSION
     Dosage: 1000 G 1/D PO
     Route: 048
  3. GARDENAL /00023201/ [Concomitant]

REACTIONS (1)
  - TENDON RUPTURE [None]
